FAERS Safety Report 9983891 (Version 1)
Quarter: 2014Q1

REPORT INFORMATION
  Report Type: Report from Study
  Country: US (occurrence: US)
  Receive Date: 20140307
  Receipt Date: 20140307
  Transmission Date: 20141002
  Serious: Yes (Hospitalization)
  Sender: FDA-Public Use
  Company Number: US-ABBVIE-13P-163-1183981-00

PATIENT
  Age: 85 Year
  Sex: Female

DRUGS (5)
  1. HUMIRA [Suspect]
     Indication: CROHN^S DISEASE
     Dates: end: 201310
  2. ZOFRAN [Concomitant]
     Indication: NAUSEA
  3. TYLENOL [Concomitant]
     Indication: PAIN
  4. ATIVAN [Concomitant]
     Indication: ANXIETY
  5. PEPCID [Concomitant]
     Indication: GASTRIC DISORDER

REACTIONS (2)
  - Crohn^s disease [Not Recovered/Not Resolved]
  - Drug dose omission [Unknown]
